FAERS Safety Report 23920523 (Version 1)
Quarter: 2024Q2

REPORT INFORMATION
  Report Type: Spontaneous
  Country: KR (occurrence: KR)
  Receive Date: 20240530
  Receipt Date: 20240530
  Transmission Date: 20240716
  Serious: Yes (Other)
  Sender: FDA-Public Use
  Company Number: KR-BIOCRYST PHARMACEUTICALS, INC.-2024BCR00581

PATIENT

DRUGS (1)
  1. PERAMIVIR [Suspect]
     Active Substance: PERAMIVIR
     Indication: Product used for unknown indication
     Dosage: UNK
     Route: 042

REACTIONS (1)
  - Kawasaki^s disease [Unknown]
